FAERS Safety Report 17168841 (Version 1)
Quarter: 2019Q4

REPORT INFORMATION
  Report Type: Spontaneous
  Country: MY (occurrence: MY)
  Receive Date: 20191218
  Receipt Date: 20191218
  Transmission Date: 20200122
  Serious: Yes (Other)
  Sender: FDA-Public Use
  Company Number: MY-ROCHE-2493464

PATIENT
  Sex: Male

DRUGS (14)
  1. MABTHERA [Suspect]
     Active Substance: RITUXIMAB
     Dosage: 3 CYCLES WITH DHAC
     Route: 065
     Dates: start: 20171113, end: 20180112
  2. IFOSFAMIDE. [Suspect]
     Active Substance: IFOSFAMIDE
     Indication: DIFFUSE LARGE B-CELL LYMPHOMA
     Dosage: 2 CYCLES WITH RITUXIMAB
     Route: 065
     Dates: start: 20190822, end: 20190919
  3. MABTHERA [Suspect]
     Active Substance: RITUXIMAB
     Dosage: 2 CYCLES WITH ICE
     Route: 065
     Dates: start: 20190822, end: 20190919
  4. CARBOPLATIN. [Suspect]
     Active Substance: CARBOPLATIN
     Dosage: IN DHAC
     Route: 065
     Dates: start: 20171113, end: 20180112
  5. MABTHERA [Suspect]
     Active Substance: RITUXIMAB
     Dosage: 2 CYCLES WITH GDP
     Route: 065
     Dates: start: 20191018, end: 20191108
  6. CARBOPLATIN. [Suspect]
     Active Substance: CARBOPLATIN
     Indication: DIFFUSE LARGE B-CELL LYMPHOMA
     Dosage: 2 CYCLES WITH RITUXIMAB
     Route: 065
     Dates: start: 20190822, end: 20190919
  7. DEXAMETHASONE. [Suspect]
     Active Substance: DEXAMETHASONE
     Indication: DIFFUSE LARGE B-CELL LYMPHOMA
     Dosage: 2 CYCLES WITH RITUXIMAB
     Route: 065
     Dates: start: 20171113, end: 20180112
  8. MABTHERA [Suspect]
     Active Substance: RITUXIMAB
     Indication: DIFFUSE LARGE B-CELL LYMPHOMA
     Dosage: 6 CYCLES WITH CHOP
     Route: 065
     Dates: start: 20170612, end: 20170915
  9. ETOPOSIDE. [Suspect]
     Active Substance: ETOPOSIDE
     Indication: DIFFUSE LARGE B-CELL LYMPHOMA
     Dosage: 2 CYCLES WITH RITUXIMAB
     Route: 065
     Dates: start: 20190822, end: 20190919
  10. DEXAMETHASONE. [Suspect]
     Active Substance: DEXAMETHASONE
     Dosage: 2 CYCLES WITH RITUXIMAB IN GDP
     Route: 065
     Dates: start: 20191018, end: 20191108
  11. GEMCITABINE. [Suspect]
     Active Substance: GEMCITABINE
     Indication: DIFFUSE LARGE B-CELL LYMPHOMA
     Dosage: 2 CYCLES WITH RITUXIMAB
     Route: 065
     Dates: start: 20191018, end: 20191108
  12. CHOP [Suspect]
     Active Substance: CYCLOPHOSPHAMIDE\DOXORUBICIN\PREDNISONE\VINCRISTINE
     Indication: DIFFUSE LARGE B-CELL LYMPHOMA
     Dosage: 6 CYCLES WITH RITUXIMAB
     Route: 065
     Dates: start: 20170602, end: 20170915
  13. CYTARABINE. [Suspect]
     Active Substance: CYTARABINE
     Indication: DIFFUSE LARGE B-CELL LYMPHOMA
     Route: 065
     Dates: start: 20171113, end: 20180112
  14. CISPLATIN. [Suspect]
     Active Substance: CISPLATIN
     Indication: DIFFUSE LARGE B-CELL LYMPHOMA
     Dosage: 2 CYCLES WITH RITUXIMAB
     Route: 065
     Dates: start: 20191018, end: 20191108

REACTIONS (5)
  - Diffuse large B-cell lymphoma refractory [Unknown]
  - Cough [Unknown]
  - Dyspnoea [Unknown]
  - Drug ineffective [Unknown]
  - Mass [Unknown]
